FAERS Safety Report 14312892 (Version 2)
Quarter: 2018Q1

REPORT INFORMATION
  Report Type: Spontaneous
  Country: US (occurrence: US)
  Receive Date: 20171221
  Receipt Date: 20180108
  Transmission Date: 20180509
  Serious: Yes (Hospitalization)
  Sender: FDA-Public Use
  Company Number: US-BAYER-2017-240259

PATIENT
  Sex: Female

DRUGS (1)
  1. MOXIFLOXACIN ORAL [Suspect]
     Active Substance: MOXIFLOXACIN
     Dosage: 400 MG
     Route: 048

REACTIONS (3)
  - Nerve injury [Unknown]
  - Asthenia [Unknown]
  - Hemiparaesthesia [Unknown]

NARRATIVE: CASE EVENT DATE: 2017
